FAERS Safety Report 10886758 (Version 15)
Quarter: 2016Q4

REPORT INFORMATION
  Report Type: Spontaneous
  Country: US (occurrence: US)
  Receive Date: 20150304
  Receipt Date: 20161219
  Transmission Date: 20170206
  Serious: Yes (Other)
  Sender: FDA-Public Use
  Company Number: US-009507513-1502USA001477

PATIENT
  Sex: Female
  Weight: 68.27 kg

DRUGS (2)
  1. IRON (UNSPECIFIED) [Concomitant]
     Active Substance: IRON
     Indication: ANAEMIA
     Route: 065
  2. IMPLANON [Suspect]
     Active Substance: ETONOGESTREL
     Indication: CONTRACEPTION
     Dosage: 1 ROD/ 3 YEARS, LEFT ARM
     Route: 059
     Dates: start: 20120207, end: 20150831

REACTIONS (19)
  - Device difficult to use [Recovered/Resolved]
  - Menstruation irregular [Unknown]
  - Device difficult to use [Recovered/Resolved]
  - Implant site scar [Unknown]
  - Tonsillectomy [Unknown]
  - Breast pain [Unknown]
  - Acne [Unknown]
  - Device dislocation [Recovered/Resolved]
  - Metrorrhagia [Unknown]
  - Ovarian cyst [Unknown]
  - General anaesthesia [Recovered/Resolved]
  - Muscle spasms [Unknown]
  - Weight increased [Unknown]
  - Fatigue [Unknown]
  - Incorrect drug administration duration [Recovered/Resolved]
  - Device difficult to use [Recovered/Resolved]
  - Haemorrhage [Unknown]
  - Complication associated with device [Recovered/Resolved]
  - Adenoidectomy [Unknown]

NARRATIVE: CASE EVENT DATE: 201202
